FAERS Safety Report 11198889 (Version 3)
Quarter: 2015Q3

REPORT INFORMATION
  Report Type: Spontaneous
  Country: GB (occurrence: GB)
  Receive Date: 20150618
  Receipt Date: 20150818
  Transmission Date: 20151125
  Serious: Yes (Death, Hospitalization, Other)
  Sender: FDA-Public Use
  Company Number: GB-ROCHE-1593508

PATIENT
  Age: 33 Year
  Sex: Female

DRUGS (3)
  1. ZELBORAF [Suspect]
     Active Substance: VEMURAFENIB
     Route: 048
  2. ZELBORAF [Suspect]
     Active Substance: VEMURAFENIB
     Route: 048
  3. ZELBORAF [Suspect]
     Active Substance: VEMURAFENIB
     Indication: METASTATIC MALIGNANT MELANOMA
     Route: 048
     Dates: start: 20130101, end: 20130819

REACTIONS (6)
  - Hyperbilirubinaemia [Recovered/Resolved]
  - Metastases to central nervous system [Unknown]
  - Blood bilirubin increased [Recovered/Resolved]
  - Hepatic pain [Unknown]
  - Death [Fatal]
  - Liver disorder [Unknown]

NARRATIVE: CASE EVENT DATE: 20130819
